FAERS Safety Report 10314624 (Version 1)
Quarter: 2014Q3

REPORT INFORMATION
  Report Type: Spontaneous
  Country: DE (occurrence: DE)
  Receive Date: 20140718
  Receipt Date: 20140718
  Transmission Date: 20150326
  Serious: Yes (Death)
  Sender: FDA-Public Use
  Company Number: DE-ASTRAZENECA-2014SE51863

PATIENT
  Age: 83 Year
  Sex: Male
  Weight: 80 kg

DRUGS (5)
  1. MEROPENEM. [Suspect]
     Active Substance: MEROPENEM
     Indication: PERITONITIS
     Route: 042
     Dates: start: 20140405, end: 20140415
  2. CLINOLEIC [Concomitant]
     Route: 042
     Dates: start: 20140409, end: 20140422
  3. AMPICILLIN [Concomitant]
     Active Substance: AMPICILLIN
     Indication: HELICOBACTER INFECTION
     Route: 042
     Dates: start: 20140406, end: 20140409
  4. CLARITHROMYCIN. [Concomitant]
     Active Substance: CLARITHROMYCIN
     Route: 042
     Dates: start: 20140406, end: 20140409
  5. NUTRIFLEX PLUS N [Concomitant]
     Route: 042
     Dates: start: 20140407, end: 20140422

REACTIONS (2)
  - Low cardiac output syndrome [Fatal]
  - Clostridial infection [Fatal]

NARRATIVE: CASE EVENT DATE: 20140415
